FAERS Safety Report 14962676 (Version 1)
Quarter: 2018Q2

REPORT INFORMATION
  Report Type: Spontaneous
  Country: US (occurrence: US)
  Receive Date: 20180601
  Receipt Date: 20180601
  Transmission Date: 20180711
  Serious: Yes (Hospitalization)
  Sender: FDA-Public Use
  Company Number: PHEH2018US020325

PATIENT
  Age: 40 Year
  Sex: Male

DRUGS (1)
  1. JADENU [Suspect]
     Active Substance: DEFERASIROX
     Indication: IRON OVERLOAD
     Dosage: QD
     Route: 048

REACTIONS (3)
  - Ocular icterus [Recovered/Resolved]
  - Liver injury [Recovered/Resolved]
  - Asthenia [Recovered/Resolved]
